FAERS Safety Report 8709438 (Version 2)
Quarter: 2013Q4

REPORT INFORMATION
  Report Type: Spontaneous
  Country: US (occurrence: US)
  Receive Date: 20120731
  Receipt Date: 20131101
  Transmission Date: 20140711
  Serious: Yes (Hospitalization)
  Sender: FDA-Public Use
  Company Number: US-009507513-1207USA009867

PATIENT
  Age: 50 Year
  Sex: Male

DRUGS (6)
  1. ZOCOR [Suspect]
     Dosage: 40 MG, UNK
     Route: 048
  2. ACETAMINOPHEN (+) CODEINE [Suspect]
     Dosage: 1 DF, UNK
     Route: 048
  3. PRILOSEC [Suspect]
     Dosage: 40 MG, UNK
     Route: 048
  4. ACIDEX (CALCIUM CARBONATE (+) SODIUM ALGINATE (+) SODIUM BICARBONATE) [Suspect]
  5. ASPIRIN [Suspect]
     Dosage: 75 MG, UNK
     Route: 048
  6. METFORMIN [Concomitant]
     Dosage: 1.5 G, UNK
     Route: 048

REACTIONS (1)
  - Abdominal pain upper [Unknown]
